FAERS Safety Report 11849130 (Version 6)
Quarter: 2016Q2

REPORT INFORMATION
  Report Type: Report from Study
  Country: IN (occurrence: IN)
  Receive Date: 20151218
  Receipt Date: 20160504
  Transmission Date: 20160815
  Serious: Yes (Life-Threatening)
  Sender: FDA-Public Use
  Company Number: IN-ROCHE-1678010

PATIENT
  Age: 60 Year
  Sex: Female

DRUGS (8)
  1. ASPIRIN. [Concomitant]
     Active Substance: ASPIRIN
     Indication: SPINAL CORD COMPRESSION
     Route: 048
     Dates: start: 20131108, end: 20131109
  2. MEDROL [Concomitant]
     Active Substance: METHYLPREDNISOLONE
     Indication: SPINAL CORD COMPRESSION
     Route: 048
     Dates: start: 20131109, end: 20131120
  3. RANIPEP [Concomitant]
     Indication: PROPHYLAXIS
     Route: 048
     Dates: start: 20100414
  4. FOLITRAX [Concomitant]
     Indication: RHEUMATOID ARTHRITIS
     Route: 048
     Dates: start: 20101025
  5. FOLIC ACID. [Concomitant]
     Active Substance: FOLIC ACID
     Indication: PROPHYLAXIS
     Route: 048
     Dates: start: 20100813
  6. NUCOXIA [Concomitant]
     Active Substance: ETORICOXIB
     Indication: RHEUMATOID ARTHRITIS
     Route: 048
     Dates: start: 20121026
  7. TOCILIZUMAB [Suspect]
     Active Substance: TOCILIZUMAB
     Indication: RHEUMATOID ARTHRITIS
     Dosage: THE DATE OF LAST INFUSION PRIOR TO SAE (FUNCTIONAL HYPER PARATHYROID ADENOMA) IS 20/JUL/2015. LAST D
     Route: 042
  8. MAXGALIN [Concomitant]
     Indication: SPINAL CORD COMPRESSION
     Route: 048
     Dates: start: 20131108

REACTIONS (2)
  - Parathyroid tumour benign [Not Recovered/Not Resolved]
  - Blood alkaline phosphatase increased [Not Recovered/Not Resolved]

NARRATIVE: CASE EVENT DATE: 20140619
